FAERS Safety Report 7150470-3 (Version None)
Quarter: 2010Q4

REPORT INFORMATION
  Report Type: 
  Country: None (occurrence: None)
  Receive Date: 20101210
  Receipt Date: 20101207
  Transmission Date: 20110411
  Serious: Yes (Death)
  Sender: FDA-Public Use
  Company Number: PHHY2010CA80716

PATIENT
  Sex: Female

DRUGS (8)
  1. ACLASTA/ZOLEDRONATE T29581+A+ [Suspect]
     Indication: OSTEOPOROSIS
     Dosage: 5 MG
     Route: 042
     Dates: start: 20091215
  2. VITAMIN D [Concomitant]
     Dosage: 1000 IU, BID
     Route: 048
  3. VENTOLIN [Concomitant]
  4. SPIRIVA [Concomitant]
     Dosage: 18 UG, QD
  5. CALCIUM [Concomitant]
     Dosage: 500 MG, BID
     Route: 048
  6. PANTOLOC [Concomitant]
     Dosage: 40 MG, QD
     Route: 048
  7. EVISTA [Concomitant]
     Dosage: 75 NG, QD
     Route: 048
  8. DILANTIN [Concomitant]
     Dosage: 100 NG, TID
     Route: 048

REACTIONS (3)
  - CEREBRAL HAEMORRHAGE [None]
  - DEATH [None]
  - SUBARACHNOID HAEMORRHAGE [None]
